FAERS Safety Report 12264853 (Version 1)
Quarter: 2016Q2

REPORT INFORMATION
  Report Type: Spontaneous
  Country: US (occurrence: US)
  Receive Date: 20160413
  Receipt Date: 20160413
  Transmission Date: 20160815
  Serious: No
  Sender: FDA-Public Use
  Company Number: US-JNJFOC-20160301631

PATIENT
  Sex: Male
  Weight: 90.72 kg

DRUGS (2)
  1. TYLENOL [Suspect]
     Active Substance: ACETAMINOPHEN
     Indication: BURNING SENSATION
     Route: 065
     Dates: start: 2003
  2. TYLENOL [Suspect]
     Active Substance: ACETAMINOPHEN
     Indication: FACIAL PAIN
     Route: 065
     Dates: start: 2003

REACTIONS (3)
  - Drug ineffective for unapproved indication [Unknown]
  - Product use issue [Unknown]
  - Off label use [Unknown]
